FAERS Safety Report 4837176-8 (Version None)
Quarter: 2005Q4

REPORT INFORMATION
  Report Type: 
  Country: None (occurrence: None)
  Receive Date: 20051122
  Receipt Date: 20051103
  Transmission Date: 20060501
  Serious: Yes (Other)
  Sender: FDA-Public Use
  Company Number: 05-49 / 153-03

PATIENT
  Age: 54 Year
  Sex: Female
  Weight: 63.5036 kg

DRUGS (3)
  1. CLINDAMYCIN HCL [Suspect]
     Indication: PROPHYLAXIS
     Dosage: 150 MG 3X DAILY, ORALLY
     Route: 048
     Dates: start: 20050913, end: 20050919
  2. BUSPAR [Concomitant]
  3. INDERALL [Concomitant]

REACTIONS (6)
  - ABDOMINAL PAIN [None]
  - ANOREXIA [None]
  - CLOSTRIDIAL INFECTION [None]
  - DIARRHOEA [None]
  - HAEMATOCHEZIA [None]
  - MUCOUS STOOLS [None]
